FAERS Safety Report 14074039 (Version 1)
Quarter: 2017Q4

REPORT INFORMATION
  Report Type: Spontaneous
  Country: US (occurrence: US)
  Receive Date: 20171010
  Receipt Date: 20171010
  Transmission Date: 20180321
  Serious: No
  Sender: FDA-Public Use
  Company Number: US-JNJFOC-20170924661

PATIENT
  Age: 73 Year
  Sex: Female
  Weight: 81.65 kg

DRUGS (8)
  1. TYLENOL REGULAR STRENGTH [Suspect]
     Active Substance: ACETAMINOPHEN
     Indication: SINUS CONGESTION
     Dosage: EVERY 4-6 HOURS
     Route: 048
     Dates: start: 201709
  2. TYLENOL REGULAR STRENGTH [Suspect]
     Active Substance: ACETAMINOPHEN
     Indication: OROPHARYNGEAL PAIN
     Dosage: EVERY 4-6 HOURS
     Route: 048
     Dates: start: 201709
  3. TYLENOL REGULAR STRENGTH [Suspect]
     Active Substance: ACETAMINOPHEN
     Indication: INFLUENZA
     Dosage: EVERY 4-6 HOURS
     Route: 048
     Dates: start: 201709
  4. TYLENOL REGULAR STRENGTH [Suspect]
     Active Substance: ACETAMINOPHEN
     Indication: OROPHARYNGEAL PAIN
     Dosage: EVERY 4-6 HOURS
     Route: 048
     Dates: start: 201709
  5. TYLENOL REGULAR STRENGTH [Suspect]
     Active Substance: ACETAMINOPHEN
     Indication: INFLUENZA
     Dosage: EVERY 4-6 HOURS
     Route: 048
     Dates: start: 201709
  6. TYLENOL REGULAR STRENGTH [Suspect]
     Active Substance: ACETAMINOPHEN
     Indication: SINUS CONGESTION
     Dosage: EVERY 4-6 HOURS
     Route: 048
     Dates: start: 201709
  7. LOSARTAN. [Concomitant]
     Active Substance: LOSARTAN
     Indication: PRODUCT USED FOR UNKNOWN INDICATION
     Route: 065
  8. LASIX [Concomitant]
     Active Substance: FUROSEMIDE
     Indication: PRODUCT USED FOR UNKNOWN INDICATION
     Route: 065

REACTIONS (1)
  - Drug ineffective for unapproved indication [Unknown]
